FAERS Safety Report 8558935-4 (Version None)
Quarter: 2012Q3

REPORT INFORMATION
  Report Type: 
  Country: None (occurrence: None)
  Receive Date: 20120802
  Receipt Date: 20120724
  Transmission Date: 20120928
  Serious: Yes (Other)
  Sender: FDA-Public Use
  Company Number: IT-BRISTOL-MYERS SQUIBB COMPANY-16818932

PATIENT

DRUGS (1)
  1. ERBITUX [Suspect]
     Indication: COLON CANCER

REACTIONS (2)
  - EPISTAXIS [None]
  - RECTAL HAEMORRHAGE [None]
